FAERS Safety Report 21687855 (Version 1)
Quarter: 2022Q4

REPORT INFORMATION
  Report Type: Spontaneous
  Country: RU (occurrence: None)
  Receive Date: 20221206
  Receipt Date: 20221206
  Transmission Date: 20230112
  Serious: Yes (Other)
  Sender: FDA-Public Use
  Company Number: RU-Merck Healthcare KGaA-9369475

PATIENT
  Age: 58 Year
  Sex: Male

DRUGS (2)
  1. AVELUMAB [Suspect]
     Active Substance: AVELUMAB
     Indication: Renal cancer metastatic
     Route: 042
     Dates: start: 202202
  2. AXITINIB [Concomitant]
     Active Substance: AXITINIB
     Indication: Renal cancer metastatic

REACTIONS (3)
  - Vertebral foraminal stenosis [Unknown]
  - Metastases to spine [Unknown]
  - Spinal fracture [Unknown]

NARRATIVE: CASE EVENT DATE: 20220301
